FAERS Safety Report 7292490-4 (Version None)
Quarter: 2011Q1

REPORT INFORMATION
  Report Type: 
  Country: None (occurrence: None)
  Receive Date: 20110215
  Receipt Date: 20110204
  Transmission Date: 20110831
  Serious: Yes (Other)
  Sender: FDA-Public Use
  Company Number: PT-JNJFOC-20100200577

PATIENT
  Sex: Female
  Weight: 60 kg

DRUGS (7)
  1. ETRAVIRINE [Suspect]
     Indication: HIV INFECTION
     Route: 048
  2. ETRAVIRINE [Suspect]
     Route: 048
  3. TRUVADA [Concomitant]
     Indication: HIV INFECTION
  4. CLINDAMYCIN [Concomitant]
  5. RALTEGRAVIR [Concomitant]
     Indication: HIV INFECTION
     Route: 048
  6. AZT [Concomitant]
  7. BETAMETHASONE [Concomitant]

REACTIONS (2)
  - PREMATURE LABOUR [None]
  - DRUG EXPOSURE DURING PREGNANCY [None]
